FAERS Safety Report 9144993 (Version 1)
Quarter: 2013Q1

REPORT INFORMATION
  Report Type: Spontaneous
  Country: US (occurrence: US)
  Receive Date: 20130307
  Receipt Date: 20130307
  Transmission Date: 20140127
  Serious: No
  Sender: FDA-Public Use
  Company Number: US-BIOGENIDEC-2013BI019047

PATIENT
  Sex: Female

DRUGS (4)
  1. TYSABRI [Suspect]
     Indication: MULTIPLE SCLEROSIS
     Route: 042
     Dates: start: 20070104, end: 20091119
  2. TYSABRI [Suspect]
     Indication: MULTIPLE SCLEROSIS
     Route: 042
     Dates: start: 20100809
  3. MODAFINIL [Concomitant]
     Indication: FATIGUE
  4. ADDERALL [Concomitant]
     Indication: FATIGUE

REACTIONS (2)
  - White blood cell count increased [Not Recovered/Not Resolved]
  - Fibromyalgia [Recovered/Resolved]
